FAERS Safety Report 18001646 (Version 2)
Quarter: 2020Q3

REPORT INFORMATION
  Report Type: Report from Study
  Country: AR (occurrence: AR)
  Receive Date: 20200709
  Receipt Date: 20200716
  Transmission Date: 20201103
  Serious: Yes (Hospitalization)
  Sender: FDA-Public Use
  Company Number: AR-SEATTLE GENETICS-2020SGN02992

PATIENT
  Age: 22 Year
  Sex: Male

DRUGS (1)
  1. BRENTUXIMAB VEDOTIN [Suspect]
     Active Substance: BRENTUXIMAB VEDOTIN
     Indication: HODGKIN^S DISEASE STAGE II
     Dosage: 50 MILLIGRAM
     Route: 065
     Dates: start: 20200205

REACTIONS (5)
  - Nasopharyngitis [Unknown]
  - Secretion discharge [Recovering/Resolving]
  - Cough [Unknown]
  - Peripheral swelling [Unknown]
  - Asthenia [Unknown]

NARRATIVE: CASE EVENT DATE: 202006
